FAERS Safety Report 7978229-5 (Version None)
Quarter: 2011Q4

REPORT INFORMATION
  Report Type: 
  Country: None (occurrence: None)
  Receive Date: 20111214
  Receipt Date: 20111212
  Transmission Date: 20120403
  Serious: Yes (Other)
  Sender: FDA-Public Use
  Company Number: US-PFIZER INC-2011302601

PATIENT
  Sex: Female
  Weight: 99.773 kg

DRUGS (7)
  1. NOVOLOG [Concomitant]
     Dosage: 30 UNITS, 2X/DAY
  2. GEODON [Suspect]
     Indication: DEPRESSION
     Dosage: UNK
     Route: 048
     Dates: start: 20111101, end: 20111101
  3. LEVEMIR [Concomitant]
     Dosage: 60 UNITS, 2X/DAY
  4. FLECAINIDE [Concomitant]
     Dosage: 100 MG, 2X/DAY
  5. KLONOPIN [Concomitant]
     Dosage: 0.5 MG, 2X/DAY
  6. PRADAXA [Concomitant]
     Dosage: 150 MG, 2X/DAY
  7. REQUIP [Concomitant]
     Indication: RESTLESS LEGS SYNDROME
     Dosage: 2 MG, 2X/DAY

REACTIONS (2)
  - HALLUCINATION [None]
  - INCONTINENCE [None]
